FAERS Safety Report 6095086-5 (Version None)
Quarter: 2009Q1

REPORT INFORMATION
  Report Type: 
  Country: None (occurrence: None)
  Receive Date: 20090227
  Receipt Date: 20080211
  Transmission Date: 20090719
  Serious: No
  Sender: FDA-Public Use
  Company Number: A0703367A

PATIENT
  Sex: Female

DRUGS (3)
  1. LAMICTAL [Suspect]
     Indication: BIPOLAR DISORDER
     Dosage: 200MG AT NIGHT
     Route: 048
     Dates: end: 20080105
  2. CONCERTA [Concomitant]
     Indication: SEDATION
     Dosage: 54MG IN THE MORNING
     Route: 065
  3. ATIVAN [Concomitant]
     Indication: ANXIETY
     Dosage: .5VA AS REQUIRED
     Route: 065

REACTIONS (6)
  - AFFECT LABILITY [None]
  - CONFUSIONAL STATE [None]
  - DISORIENTATION [None]
  - FALL [None]
  - HEADACHE [None]
  - SEDATION [None]
